FAERS Safety Report 6379678-1 (Version None)
Quarter: 2009Q3

REPORT INFORMATION
  Report Type: 
  Country: None (occurrence: None)
  Receive Date: 20090928
  Receipt Date: 20090918
  Transmission Date: 20100115
  Serious: Yes (Hospitalization, Other)
  Sender: FDA-Public Use
  Company Number: JP-PFIZER INC-2009261517

PATIENT
  Age: 46 Year

DRUGS (5)
  1. AMLODIPINE BESYLATE [Suspect]
  2. PROPRANOLOL [Suspect]
  3. LEVOMEPROMAZINE [Suspect]
  4. ESTAZOLAM [Suspect]
  5. BROTIZOLAM [Suspect]

REACTIONS (5)
  - ATRIOVENTRICULAR BLOCK SECOND DEGREE [None]
  - BLOOD PRESSURE DECREASED [None]
  - DEPRESSED LEVEL OF CONSCIOUSNESS [None]
  - MULTIPLE DRUG OVERDOSE INTENTIONAL [None]
  - NODAL RHYTHM [None]
